FAERS Safety Report 20205793 (Version 1)
Quarter: 2021Q4

REPORT INFORMATION
  Report Type: Spontaneous
  Country: AU (occurrence: AU)
  Receive Date: 20211220
  Receipt Date: 20211220
  Transmission Date: 20220303
  Serious: Yes (Other)
  Sender: FDA-Public Use
  Company Number: None

PATIENT
  Age: 47 Year
  Sex: Male

DRUGS (6)
  1. INFLIXIMAB [Suspect]
     Active Substance: INFLIXIMAB
     Indication: Immune-mediated enterocolitis
     Dosage: AT 0, 2, AND 6 WEEKS
     Route: 065
  2. INFLIXIMAB [Suspect]
     Active Substance: INFLIXIMAB
     Dosage: UNKNOWN ESCALATED DOSE
     Route: 065
  3. METHYLPREDNISOLONE [Suspect]
     Active Substance: METHYLPREDNISOLONE
     Indication: Immune-mediated enterocolitis
     Dosage: GREATER THAN OR EQUAL TO 80 MG
     Route: 042
  4. VEDOLIZUMAB [Suspect]
     Active Substance: VEDOLIZUMAB
     Indication: Immune-mediated enterocolitis
     Route: 042
  5. IPILIMUMAB [Concomitant]
     Active Substance: IPILIMUMAB
     Indication: Metastatic malignant melanoma
     Dosage: UNKNOWN
     Route: 065
  6. NIVOLUMAB [Concomitant]
     Active Substance: NIVOLUMAB
     Indication: Metastatic malignant melanoma
     Dosage: UNKNOWN
     Route: 065

REACTIONS (4)
  - Colitis [Recovered/Resolved]
  - Metastatic malignant melanoma [Unknown]
  - Drug ineffective for unapproved indication [Unknown]
  - Off label use [Unknown]
